FAERS Safety Report 4795147-4 (Version None)
Quarter: 2005Q4

REPORT INFORMATION
  Report Type: 
  Country: None (occurrence: None)
  Receive Date: 20051006
  Receipt Date: 20051006
  Transmission Date: 20060501
  Serious: No
  Sender: FDA-Public Use
  Company Number: None

PATIENT
  Age: 50 Year
  Sex: Female
  Weight: 53.0709 kg

DRUGS (6)
  1. CYMBALTA [Suspect]
     Indication: DEPRESSION
     Dosage: 3 CAPS QD PO
     Route: 048
     Dates: start: 20050811, end: 20050813
  2. REMERON [Concomitant]
  3. LORAZEPAM [Concomitant]
  4. MAXZIDE [Concomitant]
  5. LACTULOSE [Concomitant]
  6. IMITREX [Concomitant]

REACTIONS (4)
  - ASTHENIA [None]
  - DIZZINESS [None]
  - HYPERTENSIVE CRISIS [None]
  - PALPITATIONS [None]
